FAERS Safety Report 7938916-1 (Version None)
Quarter: 2011Q4

REPORT INFORMATION
  Report Type: 
  Country: None (occurrence: None)
  Receive Date: 20111124
  Receipt Date: 20111115
  Transmission Date: 20120403
  Serious: Yes (Other)
  Sender: FDA-Public Use
  Company Number: JP-JNJFOC-20110905415

PATIENT
  Sex: Female

DRUGS (8)
  1. PREDNISOLONE [Concomitant]
     Indication: INFLAMMATION
     Route: 048
     Dates: start: 20110902, end: 20111004
  2. LEVOTHYROXINE SODIUM [Concomitant]
     Indication: HYPOTHYROIDISM
     Route: 048
     Dates: start: 20110823
  3. CORTRIL [Concomitant]
     Indication: ADRENOCORTICAL STEROID THERAPY
     Route: 048
     Dates: start: 20110825
  4. FENTANYL-100 [Suspect]
     Indication: PAIN
     Route: 062
     Dates: start: 20110826, end: 20110913
  5. LANSOPRAZOLE [Concomitant]
     Indication: HYPERCHLORHYDRIA
     Route: 048
     Dates: start: 20110902
  6. PREDNISOLONE [Concomitant]
     Indication: BRAIN NEOPLASM
     Route: 048
     Dates: start: 20110902, end: 20111004
  7. CORTRIL [Concomitant]
     Indication: HYPOPITUITARISM
     Route: 048
     Dates: start: 20110825
  8. DIAZEPAM [Suspect]
     Indication: BRAIN NEOPLASM
     Route: 048
     Dates: start: 20110828, end: 20110905

REACTIONS (5)
  - AGGRESSION [None]
  - FAECAL INCONTINENCE [None]
  - SOMNOLENCE [None]
  - WITHDRAWAL SYNDROME [None]
  - RESTLESSNESS [None]
